FAERS Safety Report 20568400 (Version 1)
Quarter: 2022Q1

REPORT INFORMATION
  Report Type: Spontaneous
  Country: DE (occurrence: DE)
  Receive Date: 20220308
  Receipt Date: 20220308
  Transmission Date: 20220424
  Serious: Yes (Other)
  Sender: FDA-Public Use
  Company Number: DE-EMA-DD-20220125-zaviour_n-104713

PATIENT
  Age: 57 Year
  Sex: Female
  Weight: 93 kg

DRUGS (6)
  1. CLOZAPINE [Suspect]
     Active Substance: CLOZAPINE
     Indication: Schizophrenia
     Dosage: 600 MILLIGRAM, QD
     Route: 048
     Dates: start: 1998, end: 20000110
  2. CLOZAPINE [Suspect]
     Active Substance: CLOZAPINE
     Dosage: 700 MILLIGRAM, QD
     Route: 048
     Dates: start: 20000110, end: 200208
  3. CLOZAPINE [Suspect]
     Active Substance: CLOZAPINE
     Dosage: 575 MILLIGRAM, QD (575MG/DAY)
     Route: 048
     Dates: start: 200208
  4. CLOZAPINE [Suspect]
     Active Substance: CLOZAPINE
     Dosage: 575 MILLIGRAM, QD
     Route: 048
  5. HALOPERIDOL [Suspect]
     Active Substance: HALOPERIDOL
     Indication: Schizophrenia
     Dosage: 12 MILLIGRAM, QD (12 MG/DAY)
     Route: 048
     Dates: start: 20000629
  6. LACTULOSE [Concomitant]
     Active Substance: LACTULOSE
     Indication: Constipation
     Dosage: UNK
     Route: 065
     Dates: start: 1998

REACTIONS (2)
  - Ileus [Recovered/Resolved]
  - Vomiting [Recovered/Resolved]

NARRATIVE: CASE EVENT DATE: 20020730
